FAERS Safety Report 8619530-1 (Version None)
Quarter: 2012Q3

REPORT INFORMATION
  Report Type: 
  Country: None (occurrence: None)
  Receive Date: 20120824
  Receipt Date: 20120402
  Transmission Date: 20120928
  Serious: No
  Sender: FDA-Public Use
  Company Number: US-ASTRAZENECA-2012SE22119

PATIENT
  Age: 41 Year
  Sex: Female

DRUGS (7)
  1. SINGULAIR [Concomitant]
  2. PULMICORT [Concomitant]
     Route: 055
  3. IBUPROFEN [Concomitant]
  4. SYMBICORT [Suspect]
     Route: 055
  5. ALBUTEROL [Concomitant]
  6. NASONEX [Concomitant]
  7. BROVANA [Concomitant]

REACTIONS (1)
  - ADVERSE DRUG REACTION [None]
